FAERS Safety Report 6094042-0 (Version None)
Quarter: 2009Q1

REPORT INFORMATION
  Report Type: 
  Country: None (occurrence: None)
  Receive Date: 20090223
  Receipt Date: 20090212
  Transmission Date: 20090719
  Serious: Yes (Other)
  Sender: FDA-Public Use
  Company Number: GXKR2009TR01903

PATIENT
  Age: 24 Year
  Sex: Female

DRUGS (5)
  1. METHYLPREDNISOLONE 4MG TAB [Suspect]
     Indication: SYSTEMIC LUPUS ERYTHEMATOSUS
     Dosage: ONCE A MONTH
  2. PREDNISOLONE [Suspect]
     Indication: SYSTEMIC LUPUS ERYTHEMATOSUS
     Dosage: 10-32 MG DAILY
  3. CYCLOPHOSPHAMIDE [Suspect]
     Indication: SYSTEMIC LUPUS ERYTHEMATOSUS
     Dosage: 50-150 MG/DAY
  4. AZATHIOPRINE [Concomitant]
  5. HYDROXYCHLOROQUINE SULFATE [Concomitant]

REACTIONS (5)
  - BLADDER CANCER [None]
  - FLANK PAIN [None]
  - HAEMATURIA [None]
  - HYDRONEPHROSIS [None]
  - URINARY TRACT INFECTION BACTERIAL [None]
